FAERS Safety Report 14650629 (Version 1)
Quarter: 2018Q1

REPORT INFORMATION
  Report Type: Spontaneous
  Country: CA (occurrence: CA)
  Receive Date: 20180316
  Receipt Date: 20180316
  Transmission Date: 20180509
  Serious: Yes (Other)
  Sender: FDA-Public Use
  Company Number: CA-TEVA-2018-CA-868434

PATIENT
  Age: 5 Year
  Sex: Male
  Weight: 18 kg

DRUGS (12)
  1. CISPLATIN INJECTION [Suspect]
     Active Substance: CISPLATIN
     Indication: NEUROBLASTOMA
     Dosage: SOLUTION INTRAVENOUS
     Route: 042
  2. CYCLOPHOSPHAMIDE. [Concomitant]
     Active Substance: CYCLOPHOSPHAMIDE
     Dosage: POWDER FOR SOLUTION INTRAVENOUS
  3. STERILE VANCOMYCIN HYDROCHLORIDE, USP [Suspect]
     Active Substance: VANCOMYCIN HYDROCHLORIDE
     Dosage: POWDER FOR SOLUTION INTRAVENOUS
     Route: 042
  4. MELPHALAN. [Concomitant]
     Active Substance: MELPHALAN
  5. VINCRISTINE SULFATE. [Suspect]
     Active Substance: VINCRISTINE SULFATE
     Indication: NEUROBLASTOMA
     Route: 042
  6. DOXORUBICIN HYDROCHLORIDE INJECTION [Concomitant]
     Active Substance: DOXORUBICIN HYDROCHLORIDE
  7. INTERLEUKIN-2 [Concomitant]
     Active Substance: ALDESLEUKIN
  8. TOPOTECAN [Concomitant]
     Active Substance: TOPOTECAN HYDROCHLORIDE
  9. CARBOPLATIN. [Suspect]
     Active Substance: CARBOPLATIN
     Indication: NEUROBLASTOMA
     Dosage: SOLUTION INTRAVENOUS
     Route: 042
  10. ETOPOSIDE INJECTION, USP [Concomitant]
     Active Substance: ETOPOSIDE
  11. TOBRAMYCIN INJECTION USP [Suspect]
     Active Substance: TOBRAMYCIN
     Indication: NEUTROPENIA
     Route: 042
  12. DINUTUXIMAB [Concomitant]
     Active Substance: DINUTUXIMAB

REACTIONS (2)
  - Deafness [Not Recovered/Not Resolved]
  - Ototoxicity [Not Recovered/Not Resolved]
